FAERS Safety Report 6185026-2 (Version None)
Quarter: 2009Q2

REPORT INFORMATION
  Report Type: 
  Country: None (occurrence: None)
  Receive Date: 20090511
  Receipt Date: 20090414
  Transmission Date: 20091009
  Serious: No
  Sender: FDA-Public Use
  Company Number: A0779441A

PATIENT
  Sex: Male

DRUGS (8)
  1. COREG CR [Suspect]
     Indication: DRUG USE FOR UNKNOWN INDICATION
     Dates: start: 20090401
  2. GARLIC [Concomitant]
  3. VITAMIN B-12 [Concomitant]
  4. FLAXSEED [Concomitant]
  5. COQ10 [Concomitant]
  6. VITAMIN-MINERAL COMPOUND TAB [Concomitant]
  7. SAW PALMETTO [Concomitant]
  8. WARFARIN SODIUM [Concomitant]
     Dosage: 2MG PER DAY
     Dates: start: 20090410

REACTIONS (1)
  - BLOOD PRESSURE INCREASED [None]
